FAERS Safety Report 4897719-5 (Version None)
Quarter: 2006Q1

REPORT INFORMATION
  Report Type: 
  Country: None (occurrence: None)
  Receive Date: 20060201
  Receipt Date: 20060124
  Transmission Date: 20060701
  Serious: Yes (Hospitalization)
  Sender: FDA-Public Use
  Company Number: US-BOEHRINGER INGELHEIM PHARMACEUTICALS, INC.-2006-BP-00920BP

PATIENT

DRUGS (2)
  1. SPIRIVA [Suspect]
  2. QVAR 40 [Concomitant]

REACTIONS (2)
  - DYSPNOEA [None]
  - RASH [None]
